FAERS Safety Report 17819278 (Version 1)
Quarter: 2020Q2

REPORT INFORMATION
  Report Type: Report from Study
  Country: MX (occurrence: MX)
  Receive Date: 20200523
  Receipt Date: 20200523
  Transmission Date: 20200714
  Serious: Yes (Other)
  Sender: FDA-Public Use
  Company Number: NVSC2020MX140802

PATIENT
  Age: 48 Year
  Sex: Female

DRUGS (1)
  1. GALVUS MET [Suspect]
     Active Substance: METFORMIN HYDROCHLORIDE\VILDAGLIPTIN
     Indication: DIABETES MELLITUS
     Dosage: 1 DF, BID (STARTED APPROX 2 YEARS AGO)
     Route: 048
     Dates: start: 2018

REACTIONS (2)
  - Respiratory disorder [Unknown]
  - Salmonellosis [Unknown]

NARRATIVE: CASE EVENT DATE: 202005
